FAERS Safety Report 15487772 (Version 1)
Quarter: 2018Q4

REPORT INFORMATION
  Report Type: Spontaneous
  Country: US (occurrence: US)
  Receive Date: 20181011
  Receipt Date: 20181011
  Transmission Date: 20190205
  Serious: No
  Sender: FDA-Public Use
  Company Number: US-BAYER-2018-188497

PATIENT
  Age: 84 Year
  Sex: Female

DRUGS (1)
  1. ALEVE PM [Suspect]
     Active Substance: DIPHENHYDRAMINE HYDROCHLORIDE\NAPROXEN SODIUM
     Indication: PAIN
     Dosage: 1 DF, QD
     Route: 048
     Dates: start: 20181008

REACTIONS (4)
  - Product package associated injury [Unknown]
  - Product use complaint [None]
  - Intentional product misuse [Unknown]
  - Underdose [Unknown]

NARRATIVE: CASE EVENT DATE: 20181008
